FAERS Safety Report 21298775 (Version 1)
Quarter: 2022Q3

REPORT INFORMATION
  Report Type: Spontaneous
  Country: GB (occurrence: GB)
  Receive Date: 20220906
  Receipt Date: 20220906
  Transmission Date: 20221027
  Serious: Yes (Other)
  Sender: FDA-Public Use
  Company Number: None

PATIENT
  Age: 85 Year
  Sex: Female
  Weight: 72 kg

DRUGS (15)
  1. QUETIAPINE [Suspect]
     Active Substance: QUETIAPINE
     Indication: Product used for unknown indication
     Dosage: 25 MILLIGRAM
     Route: 065
     Dates: start: 20220823, end: 20220829
  2. ATORVASTATIN [Concomitant]
     Active Substance: ATORVASTATIN
     Dosage: UNK
     Route: 065
     Dates: start: 20220701
  3. ANUSOL NOS [Concomitant]
     Active Substance: BALSAM PERU\BENZYL BENZOATE\BISMUTH HYDROXIDE\BISMUTH SUBGALLATE\HYDROCORTISONE ACETATE\ZINC OXIDE
     Dosage: UNK (APPLY TWICE DAILY AND AFTER MOTIONS)
     Route: 065
     Dates: start: 20220624
  4. BISOPROLOL [Concomitant]
     Active Substance: BISOPROLOL
     Dosage: UNK
     Route: 065
     Dates: start: 20220701
  5. CARBOMER [Concomitant]
     Active Substance: CARBOMER
     Dosage: UNK UNK, BID (USE IN BOTH EYES TWICE DAILY)
     Route: 047
     Dates: start: 20220801, end: 20220826
  6. CETIRIZINE [Concomitant]
     Active Substance: CETIRIZINE HYDROCHLORIDE
     Dosage: UNK
     Route: 065
     Dates: start: 20220829
  7. EDOXABAN [Concomitant]
     Active Substance: EDOXABAN
     Dosage: UNK UNK, AM (IN THE MORNING)
     Route: 065
     Dates: start: 20220701
  8. NITROGLYCERIN [Concomitant]
     Active Substance: NITROGLYCERIN
     Indication: Chest pain
     Dosage: 800 MICROGRAM (400MICROGRAMS/DOSE PUMP)
     Route: 060
     Dates: start: 20220801, end: 20220826
  9. IBUPROFEN [Concomitant]
     Active Substance: IBUPROFEN
     Dosage: UNK (APPLY TO LEFT KNEE)
     Route: 065
     Dates: start: 20220801, end: 20220826
  10. POLYETHYLENE GLYCOL 3350\POTASSIUM CHLORIDE\SODIUM BICARBONATE\SODIUM [Concomitant]
     Active Substance: POLYETHYLENE GLYCOL 3350\POTASSIUM CHLORIDE\SODIUM BICARBONATE\SODIUM CHLORIDE
     Indication: Constipation
     Dosage: UNK UNK, QD (1-3 SACHETS DAILY)
     Route: 048
     Dates: start: 20220615
  11. MIRTAZAPINE [Concomitant]
     Active Substance: MIRTAZAPINE
     Dosage: UNK UNK, PM (AT NIGHT)
     Route: 065
     Dates: start: 20220701
  12. OMEPRAZOLE [Concomitant]
     Active Substance: OMEPRAZOLE
     Dosage: 1 DOSAGE FORM, BID (ONE MANE AND ONE NOCTE)
     Route: 065
     Dates: start: 20220701
  13. ACETAMINOPHEN [Concomitant]
     Active Substance: ACETAMINOPHEN
     Dosage: UNK
     Route: 065
     Dates: start: 20220701
  14. CALCIUM CARBONATE\SODIUM ALGINATE\SODIUM BICARBONATE [Concomitant]
     Active Substance: CALCIUM CARBONATE\SODIUM ALGINATE\SODIUM BICARBONATE
     Dosage: 10 MILLILITER (AFTER MEALS AND AT BEDTIME)
     Route: 065
     Dates: start: 20220801, end: 20220826
  15. ROPINIROLE [Concomitant]
     Active Substance: ROPINIROLE
     Dosage: UNK UNK, PM (AT NIGHT)
     Route: 065
     Dates: start: 20220701

REACTIONS (3)
  - Swelling [Unknown]
  - Swelling of eyelid [Unknown]
  - Vision blurred [Unknown]

NARRATIVE: CASE EVENT DATE: 20220826
